FAERS Safety Report 7296096-2 (Version None)
Quarter: 2011Q1

REPORT INFORMATION
  Report Type: 
  Country: None (occurrence: None)
  Receive Date: 20110216
  Receipt Date: 20101208
  Transmission Date: 20110831
  Serious: No
  Sender: FDA-Public Use
  Company Number: US-ABBOTT-10P-163-0690198-00

PATIENT
  Sex: Male

DRUGS (2)
  1. SIMCOR [Suspect]
     Dosage: TITRATED TO 1500/40MG AT BEDTIME
     Route: 048
  2. SIMCOR [Suspect]
     Indication: PRODUCT USED FOR UNKNOWN INDICATION
     Dosage: 500/20MG AT BEDTIME
     Route: 048
     Dates: start: 20100901

REACTIONS (1)
  - FLUSHING [None]
